FAERS Safety Report 11095193 (Version 1)
Quarter: 2015Q2

REPORT INFORMATION
  Report Type: Spontaneous
  Country: US (occurrence: US)
  Receive Date: 20150506
  Receipt Date: 20150506
  Transmission Date: 20150821
  Serious: No
  Sender: FDA-Public Use
  Company Number: US-SA-2014SA108920

PATIENT
  Age: 45 Year
  Sex: Female

DRUGS (1)
  1. APIDRA [Suspect]
     Active Substance: INSULIN GLULISINE
     Indication: TYPE 1 DIABETES MELLITUS
     Dosage: DOSE- 15-20 UNITS
     Route: 065
     Dates: end: 2014

REACTIONS (3)
  - Muscle tightness [Recovering/Resolving]
  - Mobility decreased [Recovering/Resolving]
  - Dysstasia [Recovering/Resolving]
